FAERS Safety Report 9960013 (Version 1)
Quarter: 2014Q1

REPORT INFORMATION
  Report Type: Spontaneous
  Country: NL (occurrence: None)
  Receive Date: 20140227
  Receipt Date: 20140227
  Transmission Date: 20141002
  Serious: No
  Sender: FDA-Public Use
  Company Number: B0972435A

PATIENT
  Sex: Male
  Weight: 59.88 kg

DRUGS (1)
  1. PAROXETINE HYDROCHLORIDE (FORMULATION UNKNOWN) (GENERIC) (PAROXETINE HYDROCHLORIDE) [Suspect]
     Indication: DEPRESSION
     Dates: start: 20090415, end: 20140130

REACTIONS (6)
  - Pneumonia [None]
  - Therapeutic response unexpected with drug substitution [None]
  - Weight decreased [None]
  - Fatigue [None]
  - Serotonin syndrome [None]
  - Rash [None]
